FAERS Safety Report 11933783 (Version 1)
Quarter: 2016Q1

REPORT INFORMATION
  Report Type: Spontaneous
  Country: US (occurrence: None)
  Receive Date: 20160120
  Receipt Date: 20160120
  Transmission Date: 20160526
  Serious: Yes (Other)
  Sender: FDA-Public Use
  Company Number: None

PATIENT
  Age: 39 Year
  Sex: Female

DRUGS (1)
  1. HUMIRA [Suspect]
     Active Substance: ADALIMUMAB
     Indication: PRODUCT USED FOR UNKNOWN INDICATION
     Dosage: INJECTABLE, STARTER KIT  (40MG/0.8ML
     Dates: start: 20151223

REACTIONS (3)
  - Thirst [None]
  - Hypopnoea [None]
  - Chest discomfort [None]

NARRATIVE: CASE EVENT DATE: 20160106
